FAERS Safety Report 8001804-9 (Version None)
Quarter: 2011Q4

REPORT INFORMATION
  Report Type: 
  Country: None (occurrence: None)
  Receive Date: 20111222
  Receipt Date: 20111220
  Transmission Date: 20120403
  Serious: Yes (Hospitalization)
  Sender: FDA-Public Use
  Company Number: FR-ROCHE-1023914

PATIENT
  Sex: Female

DRUGS (4)
  1. AVASTIN [Suspect]
     Indication: BREAST CANCER
     Dosage: 14 CYCLES
     Dates: start: 20100212, end: 20110228
  2. ZOMETA [Concomitant]
     Dosage: A CYCLE OF THREE WEEKS, 9 CYCLES
     Dates: start: 20110314, end: 20110905
  3. AVASTIN [Suspect]
     Dosage: 9 CYCLES
     Route: 042
     Dates: start: 20110314, end: 20110905
  4. PACLITAXEL [Concomitant]
     Dosage: 14 CYCLES
     Dates: start: 20100212, end: 20110228

REACTIONS (1)
  - THROMBOTIC MICROANGIOPATHY [None]
